FAERS Safety Report 6644345-3 (Version None)
Quarter: 2010Q1

REPORT INFORMATION
  Report Type: 
  Country: None (occurrence: None)
  Receive Date: 20100318
  Receipt Date: 20100318
  Transmission Date: 20100710
  Serious: No
  Sender: FDA-Public Use
  Company Number: None

PATIENT
  Age: 30 Year
  Sex: Female
  Weight: 54.4316 kg

DRUGS (1)
  1. ADDERALL XR 20 [Suspect]
     Indication: ATTENTION DEFICIT/HYPERACTIVITY DISORDER
     Dosage: 20 MG BID PO
     Route: 048
     Dates: start: 20100313, end: 20100316

REACTIONS (6)
  - DRUG DISPENSING ERROR [None]
  - FEELING JITTERY [None]
  - FLUSHING [None]
  - NAUSEA [None]
  - PRODUCT COMMINGLING [None]
  - PRODUCT SUBSTITUTION ISSUE [None]
